FAERS Safety Report 8143689-6 (Version None)
Quarter: 2012Q1

REPORT INFORMATION
  Report Type: 
  Country: None (occurrence: None)
  Receive Date: 20120103
  Receipt Date: 20111007
  Transmission Date: 20120608
  Serious: No
  Sender: FDA-Public Use
  Company Number: AE-2011-002131

PATIENT
  Age: 61 Year
  Sex: Female
  Weight: 70.3075 kg

DRUGS (4)
  1. INCIVEK [Suspect]
     Dosage: 2250 MG (750 MG, 1 IN 8 HR), ORAL
     Route: 048
     Dates: start: 20110711
  2. RIBAVIRIN [Concomitant]
  3. WELLBUTRIN [Concomitant]
  4. INTERFERON [Concomitant]

REACTIONS (2)
  - TOOTHACHE [None]
  - HAEMOGLOBIN DECREASED [None]
